FAERS Safety Report 9915156 (Version 2)
Quarter: 2014Q1

REPORT INFORMATION
  Report Type: Spontaneous
  Country: FR (occurrence: FR)
  Receive Date: 20140220
  Receipt Date: 20140220
  Transmission Date: 20141002
  Serious: Yes (Life-Threatening)
  Sender: FDA-Public Use
  Company Number: PHHY2010FR38833

PATIENT
  Age: 73 Year
  Sex: Female

DRUGS (20)
  1. MINI-SINTROM [Suspect]
     Dosage: 1 MG, QD
     Route: 048
     Dates: end: 20100429
  2. GABAPENTIN SANDOZ [Suspect]
     Indication: NEURALGIA
     Dosage: 300 MG, QD
     Route: 048
     Dates: start: 20100428, end: 20100429
  3. ALLOPURINOL [Suspect]
     Indication: PRODUCT USED FOR UNKNOWN INDICATION
     Dosage: 300 MBQ, QD
     Route: 048
     Dates: end: 20100429
  4. ATENOLOL [Suspect]
     Indication: HYPERTENSION
     Dosage: 150 MG, QD
     Route: 048
     Dates: end: 20100429
  5. TOPALGIC [Suspect]
     Indication: SCIATICA
     Dosage: 1 DF, BID
     Route: 048
     Dates: start: 20100421, end: 20100427
  6. TOPALGIC [Suspect]
     Dosage: 2 DF, BID
     Route: 048
     Dates: start: 20100428, end: 20100429
  7. ZELITREX [Suspect]
     Indication: HERPES ZOSTER
     Dosage: 1 DF, 6QD
     Route: 048
     Dates: start: 20100429
  8. GLUCOPHAGE [Suspect]
     Indication: TYPE 2 DIABETES MELLITUS
     Dosage: 1000 MG, TID
     Route: 048
     Dates: end: 20100429
  9. LASILIX [Suspect]
     Indication: HYPERTENSION
     Dosage: 40 MG, QD
     Route: 048
     Dates: end: 20100429
  10. TENSTATEN [Suspect]
     Indication: HYPERTENSION
     Dosage: 50 MG, BID
     Route: 048
     Dates: end: 20100429
  11. ACTONEL [Suspect]
     Indication: OSTEOPOROSIS
     Dosage: 35 MG WEEKLY
     Route: 048
     Dates: end: 20100429
  12. CALCIDOSE VITAMINE D [Suspect]
     Indication: OSTEOPOROSIS
     Dosage: 2 DF DAILY
     Dates: end: 20100429
  13. TARDYFERON [Suspect]
     Dosage: 80 MG, BID
     Route: 048
     Dates: end: 20100429
  14. HUMALOG [Concomitant]
     Indication: PRODUCT USED FOR UNKNOWN INDICATION
     Dosage: 25100 IU/ML, UNK
  15. COVERSYL [Concomitant]
     Indication: PRODUCT USED FOR UNKNOWN INDICATION
  16. LANTUS [Concomitant]
     Indication: PRODUCT USED FOR UNKNOWN INDICATION
  17. HUMALOG MIX [Concomitant]
     Dosage: 25 100 IU/ML
  18. INIPOMP [Concomitant]
     Indication: PRODUCT USED FOR UNKNOWN INDICATION
  19. PREDNISONE [Concomitant]
     Indication: PRODUCT USED FOR UNKNOWN INDICATION
     Dosage: 13 MCI, QD
  20. ACE INHIBITORS AND DIURETICS [Concomitant]

REACTIONS (4)
  - Coma [Recovered/Resolved]
  - Pneumonia aspiration [Recovered/Resolved]
  - Respiratory distress [Recovered/Resolved]
  - Shock [Recovered/Resolved]
